FAERS Safety Report 13421158 (Version 3)
Quarter: 2019Q1

REPORT INFORMATION
  Report Type: Report from Study
  Country: DE (occurrence: DE)
  Receive Date: 20170410
  Receipt Date: 20190304
  Transmission Date: 20190417
  Serious: Yes (Other)
  Sender: FDA-Public Use
  Company Number: DE-ROCHE-1916581

PATIENT
  Age: 71 Year
  Sex: Female

DRUGS (7)
  1. BLINDED OLAPARIB [Suspect]
     Active Substance: OLAPARIB
     Indication: OVARIAN CANCER
     Dosage: MOST RECENT DOSE PRIOR TO SAE: /MAR/2017?RESTARTED ON 01/JUN/2017
     Route: 048
     Dates: start: 20170202, end: 20170310
  2. XARELTO [Concomitant]
     Active Substance: RIVAROXABAN
     Route: 048
  3. CANDECOR [Concomitant]
     Active Substance: CANDESARTAN CILEXETIL
     Route: 048
  4. BISOPROLOL [Concomitant]
     Active Substance: BISOPROLOL
     Route: 048
  5. CANDESARTAN. [Concomitant]
     Active Substance: CANDESARTAN
     Route: 048
  6. BEVACIZUMAB. [Suspect]
     Active Substance: BEVACIZUMAB
     Indication: OVARIAN CANCER
     Dosage: MOST RECENT DOSE PRIOR TO SAE: 23/FEB/2017, TEMPORARILY INTERRUPTED 16/MAR/2017
     Route: 065
     Dates: start: 20170202, end: 20170531
  7. INEGY [Concomitant]
     Active Substance: EZETIMIBE\SIMVASTATIN
     Dosage: 10/80
     Route: 048

REACTIONS (2)
  - Angina pectoris [Recovered/Resolved]
  - Hypertension [Recovered/Resolved]

NARRATIVE: CASE EVENT DATE: 20170223
